FAERS Safety Report 11754253 (Version 3)
Quarter: 2022Q2

REPORT INFORMATION
  Report Type: Spontaneous
  Country: CA (occurrence: CA)
  Receive Date: 20151119
  Receipt Date: 20220404
  Transmission Date: 20220721
  Serious: Yes (Disabling, Other)
  Sender: FDA-Public Use
  Company Number: CA-AMGEN-CANSP2015121229

PATIENT
  Age: 69 Year
  Sex: Female

DRUGS (6)
  1. ENBREL [Suspect]
     Active Substance: ETANERCEPT
     Indication: Rheumatoid arthritis
     Dosage: UNK
     Route: 065
     Dates: start: 20130501, end: 20130701
  2. METHOTREXATE [Suspect]
     Active Substance: METHOTREXATE
     Indication: Product used for unknown indication
     Dosage: UP TO 20 MILLIGRAM, QWK
     Route: 065
     Dates: start: 20110122, end: 20130322
  3. ORENCIA [Suspect]
     Active Substance: ABATACEPT
     Indication: Product used for unknown indication
     Dosage: UNK
     Route: 065
     Dates: start: 20140731, end: 201509
  4. ACTEMRA [Suspect]
     Active Substance: TOCILIZUMAB
     Indication: Product used for unknown indication
     Dosage: 800 MILLIGRAM/ FOUR WEEKS
     Route: 065
     Dates: start: 20130812, end: 20140114
  5. HYDROXYCHLOROQUINE [Suspect]
     Active Substance: HYDROXYCHLOROQUINE
     Indication: Product used for unknown indication
     Dosage: 200 MILLIGRAM, BID
     Route: 065
     Dates: start: 20100323
  6. LEFLUNOMIDE [Suspect]
     Active Substance: LEFLUNOMIDE
     Indication: Product used for unknown indication
     Dosage: 20 MILLIGRAM, QD
     Route: 065
     Dates: start: 20150602

REACTIONS (8)
  - Disability [Unknown]
  - Mobility decreased [Unknown]
  - Synovitis [Unknown]
  - Dyspnoea [Unknown]
  - Hypersensitivity [Unknown]
  - Drug intolerance [Unknown]
  - Drug ineffective [Unknown]
  - Neutropenia [Unknown]

NARRATIVE: CASE EVENT DATE: 20151006
